FAERS Safety Report 4397956-2 (Version None)
Quarter: 2004Q3

REPORT INFORMATION
  Report Type: 
  Country: None (occurrence: None)
  Receive Date: 20040713
  Receipt Date: 20040629
  Transmission Date: 20050211
  Serious: Yes (Hospitalization)
  Sender: FDA-Public Use
  Company Number: 04P-150-0265284-00

PATIENT
  Age: 64 Year
  Sex: Female

DRUGS (3)
  1. HUMIRA [Suspect]
     Indication: RHEUMATOID ARTHRITIS
     Dosage: 40 MG
     Dates: start: 20040614, end: 20040614
  2. DEXTROPROPOXYPHENE NAPSILATE [Concomitant]
  3. PARACETAMOL [Concomitant]

REACTIONS (7)
  - ANXIETY [None]
  - DIZZINESS [None]
  - DYSPNOEA [None]
  - PRURITUS [None]
  - RASH [None]
  - SWELLING [None]
  - URTICARIA [None]
